FAERS Safety Report 9182675 (Version 1)
Quarter: 2012Q4

REPORT INFORMATION
  Report Type: 
  Country: CA (occurrence: CA)
  Receive Date: 20121030
  Receipt Date: 20121030
  Transmission Date: 20130627
  Serious: Yes (Life-Threatening, Hospitalization, Other)
  Sender: FDA-Public Use
  Company Number: PHHY2012CA097444

PATIENT
  Age: 50 Year
  Sex: Male
  Weight: 54 kg

DRUGS (16)
  1. SANDOSTATIN LAR [Suspect]
     Dosage: 20 mg, 3.0 months
     Route: 030
  2. CALCIUM [Concomitant]
     Dosage: UNK UKN, UNK
  3. CORTEF [Concomitant]
     Dosage: UNK UKN, UNK
  4. DESYREL [Concomitant]
     Dosage: UNK UKN, UNK
  5. DILAUDID [Concomitant]
     Dosage: UNK UKN, UNK
  6. EPIVAL [Concomitant]
     Dosage: UNK UKN, UNK
  7. FENTANYL [Concomitant]
     Dosage: UNK UKN, UNK
  8. FLONASE [Concomitant]
     Dosage: UNK UKN, UNK
  9. POTASSIUM [Concomitant]
     Dosage: UNK UKN, UNK
  10. PREVACID [Concomitant]
     Dosage: UNK UKN, UNK
  11. REMERON [Concomitant]
     Dosage: UNK UKN, UNK
  12. RIVOTRIL [Concomitant]
     Dosage: UNK UKN, UNK
  13. TYLENOL [Concomitant]
     Dosage: UNK UKN, UNK
  14. VITAMIN A [Concomitant]
     Dosage: UNK UKN, UNK
  15. VITAMIN D [Concomitant]
     Dosage: UNK UKN, UNK
  16. VITAMIN K [Concomitant]
     Dosage: UNK UKN, UNK

REACTIONS (4)
  - Psychomotor skills impaired [Unknown]
  - Decreased appetite [Unknown]
  - Bradycardia [Unknown]
  - Nausea [Unknown]
